FAERS Safety Report 6583816-5 (Version None)
Quarter: 2010Q1

REPORT INFORMATION
  Report Type: 
  Country: None (occurrence: None)
  Receive Date: 20100213
  Receipt Date: 20100213
  Transmission Date: 20100710
  Serious: Yes (Hospitalization)
  Sender: FDA-Public Use
  Company Number: None

PATIENT
  Age: 73 Year
  Sex: Male
  Weight: 77.1 kg

DRUGS (3)
  1. DRONEDARONE HCL [Suspect]
     Indication: ATRIAL FIBRILLATION
     Dosage: 400MG BID PO
     Route: 048
     Dates: start: 20091214, end: 20091217
  2. DRONEDARONE HCL [Suspect]
     Indication: ATRIAL FLUTTER
     Dosage: 400MG BID PO
     Route: 048
     Dates: start: 20091214, end: 20091217
  3. SULFAMETHOXAZOLE AND TRIMETHOPRIM [Suspect]
     Indication: STENOTROPHOMONAS INFECTION
     Dosage: 800/160MG BID PO
     Route: 048
     Dates: start: 20091214, end: 20091217

REACTIONS (1)
  - BLOOD CREATININE DECREASED [None]
